FAERS Safety Report 9582243 (Version 1)
Quarter: 2013Q4

REPORT INFORMATION
  Report Type: Spontaneous
  Country: US (occurrence: US)
  Receive Date: 20131002
  Receipt Date: 20131002
  Transmission Date: 20140711
  Serious: No
  Sender: FDA-Public Use
  Company Number: US-AMGEN-USASP2013039514

PATIENT
  Age: 50 Year
  Sex: Female
  Weight: 81.63 kg

DRUGS (12)
  1. ENBREL [Suspect]
     Indication: PRODUCT USED FOR UNKNOWN INDICATION
     Dosage: 50 MG, QWK
     Route: 058
  2. METHOTREXATE [Concomitant]
     Dosage: UNK, 50MG/2 ML
  3. FOLIC ACID [Concomitant]
     Dosage: UNK
  4. LIPITOR [Concomitant]
     Dosage: 10 MG, UNK
  5. HYDROCHLOROTH [Concomitant]
     Dosage: 12.5 MG, UNK
  6. LISINOPRIL [Concomitant]
     Dosage: 10 MG, UNK
  7. NEXIUM                             /01479302/ [Concomitant]
     Dosage: 20 MG, UNK
  8. ALLEGRA [Concomitant]
     Dosage: 30 MG, UNK
  9. FISH OIL [Concomitant]
     Dosage: UNK
  10. VITAMIN D                          /00107901/ [Concomitant]
     Dosage: 400 UNIT, UNK
  11. CALCIUM [Concomitant]
     Dosage: 500 UNK, UNK
  12. NASONEX [Concomitant]
     Dosage: 50 MUG/AC

REACTIONS (2)
  - Drug ineffective [Unknown]
  - Sinusitis [Unknown]
